FAERS Safety Report 6080878-9 (Version None)
Quarter: 2009Q1

REPORT INFORMATION
  Report Type: 
  Country: None (occurrence: None)
  Receive Date: 20090217
  Receipt Date: 20090205
  Transmission Date: 20090719
  Serious: Yes (Other)
  Sender: FDA-Public Use
  Company Number: NL-ROXANE LABORATORIES, INC.-2009-RO-00115RO

PATIENT
  Age: 2 Day
  Sex: Female
  Weight: 3 kg

DRUGS (5)
  1. ZIDOVUDINE [Suspect]
     Indication: ANTIVIRAL PROPHYLAXIS
     Route: 042
  2. LAMIVUDINE [Suspect]
     Indication: ANTIVIRAL PROPHYLAXIS
     Route: 042
  3. AMOXICILLIN AND CLAVULANATE POTASSIUM [Suspect]
     Indication: NECROTISING COLITIS
  4. GENTAMICIN [Suspect]
     Indication: NECROTISING COLITIS
  5. TPN [Concomitant]
     Indication: NECROTISING COLITIS
     Route: 051

REACTIONS (5)
  - DISSEMINATED INTRAVASCULAR COAGULATION [None]
  - EUTHYROID SICK SYNDROME [None]
  - LUNG DISORDER [None]
  - NECROTISING COLITIS [None]
  - PULMONARY HYPERTENSION [None]
